FAERS Safety Report 14597590 (Version 2)
Quarter: 2018Q1

REPORT INFORMATION
  Report Type: Spontaneous
  Country: ES (occurrence: ES)
  Receive Date: 20180305
  Receipt Date: 20180315
  Transmission Date: 20180509
  Serious: Yes (Death, Other)
  Sender: FDA-Public Use
  Company Number: ES-AXELLIA-001449

PATIENT
  Age: 60 Year
  Sex: Male

DRUGS (26)
  1. ABASAGLAR [Concomitant]
     Active Substance: INSULIN GLARGINE
     Dosage: DOSE 2 UNIT UNKNOWN?BID
  2. CICLOSPORIN [Concomitant]
     Active Substance: CYCLOSPORINE
     Indication: GRAFT VERSUS HOST DISEASE
     Dosage: DOSE 2 UNIT UNKNOWN?BID
  3. NATECAL [Concomitant]
     Active Substance: CALCIUM CARBONATE\CHOLECALCIFEROL
     Dosage: 1 DF, QD
  4. VALCYTE [Suspect]
     Active Substance: VALGANCICLOVIR HYDROCHLORIDE
     Indication: CYTOMEGALOVIRUS INFECTION
     Dates: start: 201708
  5. ISAVUCONAZOLE [Concomitant]
     Active Substance: ISAVUCONAZOLE
  6. AMLODIPINE [Concomitant]
     Active Substance: AMLODIPINE BESYLATE
     Dosage: 5 MG, QD
  7. VANCOMYCIN [Concomitant]
     Active Substance: VANCOMYCIN
  8. DITROPAN [Concomitant]
     Active Substance: OXYBUTYNIN CHLORIDE
     Dosage: DOSE 10 MG?5 MG, BID
  9. VENLAFAXINE/VENLAFAXINE HYDROCHLORIDE [Concomitant]
     Dosage: 50 MG, QD
  10. FOSCARNET [Concomitant]
     Active Substance: FOSCARNET
     Indication: CYTOMEGALOVIRUS INFECTION
  11. URBASON [Concomitant]
     Active Substance: METHYLPREDNISOLONE
     Indication: GRAFT VERSUS HOST DISEASE
     Dosage: DOSE 120 MG?60 MG, BID
  12. NOVORAPID [Concomitant]
     Active Substance: INSULIN ASPART
     Dosage: DOSE 3 UNIT UNKNOWN?TID
  13. MEROPENEM. [Concomitant]
     Active Substance: MEROPENEM
  14. MYCOPHENOLIC ACID. [Concomitant]
     Active Substance: MYCOPHENOLIC ACID
     Indication: GRAFT VERSUS HOST DISEASE
     Dosage: DOSE 3000 MG?1000 MG, TID
  15. RANITIDINE. [Concomitant]
     Active Substance: RANITIDINE
     Dosage: DOSE 450 MG?150 MG, TID
  16. LORAZEPAM. [Concomitant]
     Active Substance: LORAZEPAM
  17. AMIKACIN [Concomitant]
     Active Substance: AMIKACIN
     Indication: PYREXIA
     Dates: start: 20171001
  18. RUXOLITINIB [Concomitant]
     Active Substance: RUXOLITINIB
     Dates: start: 20171209
  19. VORICONAZOLE. [Suspect]
     Active Substance: VORICONAZOLE
     Indication: SYSTEMIC MYCOSIS
     Dosage: DOSE 400 MG?200 MG, BID
     Route: 048
     Dates: start: 20170717
  20. PENTAMIDINE [Concomitant]
     Active Substance: PENTAMIDINE
     Indication: PNEUMOCYSTIS JIROVECII PNEUMONIA
     Route: 055
  21. MAGNOGENE [Concomitant]
     Dosage: DOSE 2 UNIT UNKNOWN?BID
  22. BOI-K ASPARTICO [Concomitant]
     Active Substance: ASPARTIC ACID\POTASSIUM ASCORBATE
     Dosage: DOSE 4 UNIT UNKNOWN?QID
  23. AMBISOME [Suspect]
     Active Substance: AMPHOTERICIN B
     Indication: FUSARIUM INFECTION
     Dates: start: 20171114
  24. SOLTRIM [Concomitant]
     Active Substance: SULFAMETHOXAZOLE\TRIMETHOPRIM
  25. PREDNISONE. [Concomitant]
     Active Substance: PREDNISONE
     Dosage: DOSE 60 MG?30 MG BID
  26. TAZOCEL [Concomitant]
     Active Substance: PIPERACILLIN SODIUM\TAZOBACTAM SODIUM
     Indication: PYREXIA
     Dates: start: 20171001

REACTIONS (2)
  - Rash [Unknown]
  - Drug ineffective [Fatal]
